FAERS Safety Report 8564921-0 (Version None)
Quarter: 2012Q3

REPORT INFORMATION
  Report Type: 
  Country: None (occurrence: None)
  Receive Date: 20120803
  Receipt Date: 20120801
  Transmission Date: 20120928
  Serious: No
  Sender: FDA-Public Use
  Company Number: US-PFIZER INC-2012186908

PATIENT
  Sex: Female

DRUGS (5)
  1. IBUPROFEN (ADVIL) [Suspect]
     Indication: BACK PAIN
     Dosage: 200 MG, 2X/DAY
     Route: 048
     Dates: start: 20120401
  2. IBUPROFEN (ADVIL) [Suspect]
     Indication: INFLAMMATION
  3. IBUPROFEN (ADVIL) [Suspect]
     Dosage: 2 TABLETS 200 MG, 2X/DAY
     Route: 048
  4. IBUPROFEN (ADVIL) [Suspect]
     Indication: PAIN IN EXTREMITY
  5. IBUPROFEN (ADVIL) [Suspect]
     Indication: ARTHRALGIA

REACTIONS (3)
  - DRUG INEFFECTIVE [None]
  - PAIN [None]
  - DIZZINESS [None]
